FAERS Safety Report 10011907 (Version 1)
Quarter: 2014Q1

REPORT INFORMATION
  Report Type: Spontaneous
  Country: GB (occurrence: GB)
  Receive Date: 20140314
  Receipt Date: 20140314
  Transmission Date: 20141002
  Serious: Yes (Hospitalization)
  Sender: FDA-Public Use
  Company Number: GB-ACTAVIS-2014-04332

PATIENT
  Age: 66 Year
  Sex: Male

DRUGS (5)
  1. DICLOFENAC (UNKNOWN) [Suspect]
     Indication: PAIN
     Dosage: 50 MG, TID
     Route: 048
  2. AMLODIPINE [Concomitant]
     Indication: PRODUCT USED FOR UNKNOWN INDICATION
     Dosage: 5 MG, QAM;MORNING; DISCONTINUED ON ADMISSION
     Route: 048
  3. AZATHIOPRINE [Concomitant]
     Indication: CROHN^S DISEASE
     Dosage: 50 MG, BID;REGULAR
     Route: 048
  4. CARBAMAZEPINE [Concomitant]
     Indication: EPILEPSY
     Dosage: 200 MG, TID;REGULAR
     Route: 048
  5. TRAMADOL [Concomitant]
     Indication: PRODUCT USED FOR UNKNOWN INDICATION
     Dosage: 50 MG, Q6H;WHEN REQUIRED, DISCONTINUED
     Route: 048

REACTIONS (1)
  - Ischaemic stroke [Unknown]
